FAERS Safety Report 7012206-6 (Version None)
Quarter: 2010Q3

REPORT INFORMATION
  Report Type: 
  Country: None (occurrence: None)
  Receive Date: 20100924
  Receipt Date: 20100915
  Transmission Date: 20110219
  Serious: Yes (Hospitalization)
  Sender: FDA-Public Use
  Company Number: BR-GENZYME-FABR-1001566

PATIENT
  Sex: Male
  Weight: 56 kg

DRUGS (2)
  1. FABRAZYME [Suspect]
     Indication: FABRY'S DISEASE
     Dosage: 0.7 MG/KG, Q2W
     Route: 042
     Dates: start: 20100601
  2. FABRAZYME [Suspect]
     Dosage: 1 MG/KG, Q2W
     Route: 042
     Dates: start: 20070724, end: 20100601

REACTIONS (1)
  - ANGINA PECTORIS [None]
